FAERS Safety Report 18887753 (Version 1)
Quarter: 2021Q1

REPORT INFORMATION
  Report Type: Report from Study
  Country: US (occurrence: US)
  Receive Date: 20210212
  Receipt Date: 20210212
  Transmission Date: 20210420
  Serious: Yes (Hospitalization)
  Sender: FDA-Public Use
  Company Number: US-JNJFOC-20210210894

PATIENT
  Age: 73 Year
  Sex: Female
  Weight: 69.5 kg

DRUGS (3)
  1. BOSENTAN. [Suspect]
     Active Substance: BOSENTAN
     Indication: PULMONARY HYPERTENSION
     Route: 048
  2. SELEXIPAG [Suspect]
     Active Substance: SELEXIPAG
     Dosage: 800 UG IN THE MORNING AND 600 UG IN THE EVENING
     Route: 048
  3. SELEXIPAG [Suspect]
     Active Substance: SELEXIPAG
     Indication: PULMONARY HYPERTENSION
     Route: 048

REACTIONS (3)
  - Flank pain [Unknown]
  - Headache [Unknown]
  - Dehydration [Unknown]

NARRATIVE: CASE EVENT DATE: 20210130
